FAERS Safety Report 19359661 (Version 1)
Quarter: 2021Q2

REPORT INFORMATION
  Report Type: Spontaneous
  Country: US (occurrence: US)
  Receive Date: 20210602
  Receipt Date: 20210602
  Transmission Date: 20210717
  Serious: Yes (Hospitalization)
  Sender: FDA-Public Use
  Company Number: US-APOTEX-2021AP012903

PATIENT
  Age: 15 Month
  Sex: Male
  Weight: 11 kg

DRUGS (7)
  1. BUDESONIDE. [Suspect]
     Active Substance: BUDESONIDE
     Indication: RESPIRATORY DISTRESS
     Dosage: UNK
  2. ALBUTEROL. [Suspect]
     Active Substance: ALBUTEROL
     Indication: RESPIRATORY DISTRESS
     Dosage: 1 DOSAGE FORM
  3. ALBUTEROL. [Suspect]
     Active Substance: ALBUTEROL
     Indication: COUGH
     Dosage: UNK (2.5 MG OF 5 DOSES OF INHALED INTERMITTENT NEBULIZED ALBUTEROL OVER 48 HOURS)
  4. EPINEPHRINE. [Suspect]
     Active Substance: EPINEPHRINE
     Indication: RESPIRATORY DISTRESS
     Dosage: UNK
  5. METHYLPREDNISOLONE. [Concomitant]
     Active Substance: METHYLPREDNISOLONE
     Indication: RESPIRATORY DISTRESS
     Dosage: UNK
     Route: 042
  6. CEFTRIAXONE. [Concomitant]
     Active Substance: CEFTRIAXONE
     Indication: PNEUMONIA
     Dosage: UNK
     Route: 042
  7. BUDESONIDE. [Suspect]
     Active Substance: BUDESONIDE
     Indication: COUGH

REACTIONS (2)
  - Supraventricular tachycardia [Recovered/Resolved]
  - Drug ineffective [Unknown]
